FAERS Safety Report 20659922 (Version 1)
Quarter: 2022Q1

REPORT INFORMATION
  Report Type: Spontaneous
  Country: US (occurrence: US)
  Receive Date: 20220331
  Receipt Date: 20220331
  Transmission Date: 20220423
  Serious: No
  Sender: FDA-Public Use
  Company Number: US-IBSA PHARMA INC.-2021-IBS-00562

PATIENT
  Age: 64 Year
  Weight: 108.86 kg

DRUGS (11)
  1. FLECTOR [Suspect]
     Active Substance: DICLOFENAC EPOLAMINE
     Indication: Arthralgia
     Dosage: 1 WHOLE PATCH EVERY OTHER DAY. SOMETIMES 2 DAYS IN A ROW SOMETIMES MAY GO A WEEK WITHOUT NEEDING
     Route: 062
  2. FLECTOR [Suspect]
     Active Substance: DICLOFENAC EPOLAMINE
     Indication: Back pain
  3. FLECTOR [Suspect]
     Active Substance: DICLOFENAC EPOLAMINE
     Indication: Pain
  4. FLECTOR [Suspect]
     Active Substance: DICLOFENAC EPOLAMINE
     Indication: Spinal osteoarthritis
  5. FLECTOR [Suspect]
     Active Substance: DICLOFENAC EPOLAMINE
     Indication: Sacroiliitis
  6. CELECOXIB [Suspect]
     Active Substance: CELECOXIB
     Indication: Intervertebral disc degeneration
     Dosage: ONE CAPSULE AT 06:00 AND ONE AT 14:00
     Route: 048
     Dates: start: 2020
  7. CELECOXIB [Suspect]
     Active Substance: CELECOXIB
     Indication: Spinal fusion surgery
  8. CELECOXIB [Suspect]
     Active Substance: CELECOXIB
     Indication: Nerve injury
  9. OMEPRAZOLE [Concomitant]
     Active Substance: OMEPRAZOLE
     Indication: Abdominal discomfort
  10. TRAMADOL [Concomitant]
     Active Substance: TRAMADOL
     Indication: Pain management
     Route: 048
  11. ACETAMINOPHEN [Concomitant]
     Active Substance: ACETAMINOPHEN
     Indication: Pain management

REACTIONS (7)
  - Adverse event [Not Recovered/Not Resolved]
  - Hypertension [Unknown]
  - Sedation [Unknown]
  - Dizziness [Recovered/Resolved]
  - Nausea [Unknown]
  - Blood pressure decreased [Recovered/Resolved]
  - Wrong technique in product usage process [Unknown]

NARRATIVE: CASE EVENT DATE: 20200101
